FAERS Safety Report 4494222-1 (Version None)
Quarter: 2004Q4

REPORT INFORMATION
  Report Type: 
  Country: None (occurrence: None)
  Receive Date: 20041102
  Receipt Date: 20041019
  Transmission Date: 20050328
  Serious: Yes (Hospitalization)
  Sender: FDA-Public Use
  Company Number: A04200400995

PATIENT
  Age: 67 Year
  Sex: Male

DRUGS (11)
  1. PLAVIX [Suspect]
     Indication: ATRIAL FIBRILLATION
     Dosage: 75 MG OD, ORAL
     Route: 048
     Dates: start: 20040401, end: 20040604
  2. FALITHROM ^HEXAL^ - (PHENPROCOUMON) [Suspect]
     Indication: ATRIAL FIBRILLATION
     Dosage: 12 MG PER WEEK ORAL
     Route: 048
     Dates: start: 20040401, end: 20040604
  3. ALLOPURINOL [Concomitant]
  4. ALNA (TAMSULOSIN HYDROCHLORIDE) [Concomitant]
  5. METOPROLOL SUCCINATE [Concomitant]
  6. FUROSEMIDE [Concomitant]
  7. HAEMITON 0.075 (CLONIDINE HYDROCHLORIDE) [Concomitant]
  8. DIGITOXIN TAB [Concomitant]
  9. PREDNISOLONE [Concomitant]
  10. CELLCEPT [Concomitant]
  11. PROGRAF [Concomitant]

REACTIONS (4)
  - DRUG INTERACTION [None]
  - HAEMATURIA [None]
  - RENAL CYST [None]
  - RENAL HAEMORRHAGE [None]
